FAERS Safety Report 5338495-1 (Version None)
Quarter: 2007Q2

REPORT INFORMATION
  Report Type: 
  Country: None (occurrence: None)
  Receive Date: 20070530
  Receipt Date: 20070521
  Transmission Date: 20071010
  Serious: Yes (Other)
  Sender: FDA-Public Use
  Company Number: GB-ROCHE-499528

PATIENT
  Age: 61 Year
  Sex: Female
  Weight: 108.8 kg

DRUGS (1)
  1. XENICAL [Suspect]
     Indication: OBESITY
     Route: 048
     Dates: start: 20060911, end: 20070423

REACTIONS (2)
  - ANGINA PECTORIS [None]
  - CHOLELITHIASIS [None]
